FAERS Safety Report 8016241-0 (Version None)
Quarter: 2011Q4

REPORT INFORMATION
  Report Type: 
  Country: None (occurrence: None)
  Receive Date: 20111227
  Receipt Date: 20111212
  Transmission Date: 20120403
  Serious: Yes (Hospitalization)
  Sender: FDA-Public Use
  Company Number: 2011-01399

PATIENT
  Age: 47 Year
  Sex: Male

DRUGS (2)
  1. CEPHALEXIN [Suspect]
     Indication: INFECTION PROPHYLAXIS
     Dosage: 500 MG (500 MG, ONCE) PER ORAL
     Route: 048
     Dates: start: 20111129, end: 20111129
  2. TRAMADOL HCL [Concomitant]

REACTIONS (2)
  - ABASIA [None]
  - TENDON RUPTURE [None]
